FAERS Safety Report 7905300-6 (Version None)
Quarter: 2011Q4

REPORT INFORMATION
  Report Type: 
  Country: None (occurrence: None)
  Receive Date: 20111109
  Receipt Date: 20091019
  Transmission Date: 20120403
  Serious: Yes (Death, Hospitalization, Other)
  Sender: FDA-Public Use
  Company Number: PHHY2009TW61097

PATIENT

DRUGS (2)
  1. GLEEVEC [Suspect]
     Dosage: 06 PILLS
  2. GLEEVEC [Suspect]
     Dosage: 400 MG, UNK

REACTIONS (10)
  - PAIN [None]
  - CHOLECYSTITIS ACUTE [None]
  - RASH [None]
  - SEPSIS [None]
  - PYREXIA [None]
  - BACK PAIN [None]
  - BACTERIAL INFECTION [None]
  - WHITE BLOOD CELL COUNT DECREASED [None]
  - ABDOMINAL PAIN [None]
  - MUSCULAR WEAKNESS [None]
